FAERS Safety Report 12478298 (Version 1)
Quarter: 2016Q2

REPORT INFORMATION
  Report Type: Report from Study
  Country: US (occurrence: US)
  Receive Date: 20160617
  Receipt Date: 20160617
  Transmission Date: 20160815
  Serious: Yes (Death, Other)
  Sender: FDA-Public Use
  Company Number: US-ASTRAZENECA-2016SE65859

PATIENT
  Age: 75 Year
  Sex: Male
  Weight: 57.6 kg

DRUGS (6)
  1. TRIAZOLAM. [Concomitant]
     Active Substance: TRIAZOLAM
     Indication: ANXIETY
     Dosage: 0.25 MG ONE TO TWO TABLETS, AT NIGHT
     Route: 048
     Dates: start: 201210
  2. FLOMAX [Concomitant]
     Active Substance: TAMSULOSIN HYDROCHLORIDE
     Indication: PROSTATE CANCER
     Route: 048
     Dates: start: 201302
  3. SEROQUEL XR [Suspect]
     Active Substance: QUETIAPINE FUMARATE
     Indication: ANXIETY
     Route: 048
     Dates: start: 201208
  4. CELEXA [Concomitant]
     Active Substance: CITALOPRAM HYDROBROMIDE
     Indication: ANXIETY
     Route: 048
     Dates: start: 201211
  5. LORAZEPAM. [Concomitant]
     Active Substance: LORAZEPAM
     Indication: ANXIETY
     Route: 048
     Dates: start: 201211
  6. OXYCODONE [Concomitant]
     Active Substance: OXYCODONE
     Indication: BACK PAIN
     Route: 048
     Dates: start: 20151003

REACTIONS (8)
  - Atrial flutter [Unknown]
  - Death [Fatal]
  - Skin cancer [Unknown]
  - Product use issue [Unknown]
  - Lung neoplasm malignant [Unknown]
  - Chronic obstructive pulmonary disease [Unknown]
  - Hypertension [Unknown]
  - Off label use [Unknown]

NARRATIVE: CASE EVENT DATE: 201605
